FAERS Safety Report 19595625 (Version 2)
Quarter: 2021Q3

REPORT INFORMATION
  Report Type: Spontaneous
  Country: QA (occurrence: QA)
  Receive Date: 20210722
  Receipt Date: 20210908
  Transmission Date: 20211014
  Serious: Yes (Hospitalization, Other)
  Sender: FDA-Public Use
  Company Number: QA-AMGEN-QATSP2021109018

PATIENT
  Age: 2 Year
  Sex: Male

DRUGS (2)
  1. MEROPENEM. [Concomitant]
     Active Substance: MEROPENEM
     Indication: DEVICE FAILURE
     Route: 042
  2. DARBEPOETIN ALFA [Suspect]
     Active Substance: DARBEPOETIN ALFA
     Indication: NEPHROGENIC ANAEMIA
     Dosage: 1 MCG/KG, QWK
     Route: 065

REACTIONS (8)
  - Human rhinovirus test positive [Unknown]
  - Peritonitis bacterial [Recovered/Resolved]
  - Urinary tract infection bacterial [Unknown]
  - Ultrafiltration failure [Unknown]
  - Off label use [Unknown]
  - Adenovirus test positive [Unknown]
  - Tympanic membrane hyperaemia [Unknown]
  - Drug ineffective [Unknown]
